FAERS Safety Report 9166546 (Version 1)
Quarter: 2013Q1

REPORT INFORMATION
  Report Type: Spontaneous
  Country: US (occurrence: US)
  Receive Date: 20130315
  Receipt Date: 20130315
  Transmission Date: 20140127
  Serious: No
  Sender: FDA-Public Use
  Company Number: US-B.I. PHARMACEUTICALS,INC./RIDGEFIELD-2013-BI-06634BP

PATIENT
  Age: 62 Year
  Sex: Male

DRUGS (19)
  1. SPIRIVA [Suspect]
     Indication: CHRONIC OBSTRUCTIVE PULMONARY DISEASE
     Dosage: 18 MCG
     Route: 055
     Dates: start: 2008
  2. SPIRIVA [Suspect]
     Indication: EMPHYSEMA
     Dosage: 36 MCG
     Route: 055
     Dates: start: 20130307, end: 20130307
  3. COMBIVENT [Suspect]
     Indication: CHRONIC OBSTRUCTIVE PULMONARY DISEASE
     Dosage: 2 PUF
     Route: 055
  4. COMBIVENT [Suspect]
     Indication: EMPHYSEMA
  5. XANAX [Concomitant]
     Indication: ANXIETY
     Dosage: 1 MG
     Route: 048
  6. MONTELUKAST [Concomitant]
     Indication: SEASONAL ALLERGY
     Dosage: 10 MG
     Route: 048
  7. LORATADINE [Concomitant]
     Indication: SEASONAL ALLERGY
     Dosage: 10 MG
     Route: 048
  8. EFFEXOR [Concomitant]
     Indication: ANXIETY
     Dosage: 150 MG
     Route: 048
  9. ALBUTEROL [Concomitant]
     Indication: CHRONIC OBSTRUCTIVE PULMONARY DISEASE
     Route: 055
  10. ALBUTEROL [Concomitant]
     Indication: EMPHYSEMA
  11. MUCINEX [Concomitant]
     Indication: INCREASED UPPER AIRWAY SECRETION
     Dosage: 1200 MG
     Route: 048
  12. XOPENEX [Concomitant]
     Indication: CHRONIC OBSTRUCTIVE PULMONARY DISEASE
     Route: 055
  13. XOPENEX [Concomitant]
     Indication: EMPHYSEMA
  14. DUONEB [Concomitant]
     Indication: CHRONIC OBSTRUCTIVE PULMONARY DISEASE
     Route: 055
  15. DUONEB [Concomitant]
     Indication: EMPHYSEMA
  16. FUROSEMIDE [Concomitant]
     Indication: DYSURIA
     Dosage: 10 MG
     Route: 048
  17. BUSPIRONE [Concomitant]
     Indication: DEPRESSION
     Dosage: 15 MG
     Route: 048
  18. BUSPIRONE [Concomitant]
     Indication: ANXIETY
  19. TRAMADOL [Concomitant]
     Indication: CHEST PAIN
     Dosage: 100 MG
     Route: 048

REACTIONS (5)
  - Hyperhidrosis [Not Recovered/Not Resolved]
  - Hyperventilation [Not Recovered/Not Resolved]
  - Feeling hot [Not Recovered/Not Resolved]
  - Dyspnoea [Not Recovered/Not Resolved]
  - Intentional overdose [Recovered/Resolved]
